FAERS Safety Report 7129935-6 (Version None)
Quarter: 2010Q4

REPORT INFORMATION
  Report Type: 
  Country: None (occurrence: None)
  Receive Date: 20101130
  Receipt Date: 20100526
  Transmission Date: 20110411
  Serious: No
  Sender: FDA-Public Use
  Company Number: US-AMGEN-KDL414643

PATIENT

DRUGS (2)
  1. ARANESP [Suspect]
     Indication: RENAL FAILURE CHRONIC
     Dosage: 60 A?G, UNK
     Route: 058
     Dates: start: 20100521
  2. METOPROLOL [Concomitant]
     Dosage: UNK UNK, UNK

REACTIONS (9)
  - BACK PAIN [None]
  - BONE PAIN [None]
  - FATIGUE [None]
  - FEELING ABNORMAL [None]
  - FLUID INTAKE REDUCED [None]
  - MYALGIA [None]
  - NAUSEA [None]
  - PAIN IN EXTREMITY [None]
  - VOMITING [None]
